FAERS Safety Report 4448301-5 (Version None)
Quarter: 2004Q3

REPORT INFORMATION
  Report Type: 
  Country: None (occurrence: None)
  Receive Date: 20040910
  Receipt Date: 20040907
  Transmission Date: 20050211
  Serious: Yes (Other)
  Sender: FDA-Public Use
  Company Number: 002629

PATIENT
  Age: 55 Year
  Sex: Female

DRUGS (8)
  1. MEDROXYPROGESTERONE ACETATE [Suspect]
     Dates: start: 19930701, end: 19970101
  2. MEDROXYPROGESTERONE ACETATE [Suspect]
     Dates: start: 19991101, end: 20020401
  3. PREMARIN [Suspect]
     Dates: start: 19930701, end: 19970101
  4. PREMARIN [Suspect]
     Dates: start: 19980401, end: 20020401
  5. PROVERA [Suspect]
     Dates: start: 19930701, end: 19970101
  6. PROVERA [Suspect]
     Dates: start: 19991101, end: 20020401
  7. MEDROXYPROGESTERONE ACETATE [Suspect]
     Dates: start: 19970101, end: 19980401
  8. CYCRIN [Suspect]
     Dates: start: 19980801, end: 19990901

REACTIONS (1)
  - BREAST CANCER [None]
